FAERS Safety Report 4712402-4 (Version None)
Quarter: 2005Q3

REPORT INFORMATION
  Report Type: 
  Country: None (occurrence: None)
  Receive Date: 20050711
  Receipt Date: 20050628
  Transmission Date: 20060218
  Serious: Yes (Hospitalization, Other)
  Sender: FDA-Public Use
  Company Number: HQWYE810529JUN05

PATIENT
  Age: 38 Year
  Sex: Female

DRUGS (1)
  1. ADVIL [Suspect]

REACTIONS (4)
  - ENCEPHALITIS [None]
  - HEADACHE [None]
  - MYCOPLASMA SEROLOGY POSITIVE [None]
  - PHOTOPHOBIA [None]
